FAERS Safety Report 19294702 (Version 1)
Quarter: 2021Q2

REPORT INFORMATION
  Report Type: Spontaneous
  Country: AE (occurrence: AE)
  Receive Date: 20210524
  Receipt Date: 20210524
  Transmission Date: 20210717
  Serious: Yes (Other)
  Sender: FDA-Public Use
  Company Number: None

PATIENT
  Age: 6 Year
  Sex: Male
  Weight: 24 kg

DRUGS (5)
  1. PREDO [Concomitant]
  2. SINGULAIR [Suspect]
     Active Substance: MONTELUKAST SODIUM
     Indication: ASTHMA
     Dosage: ?          QUANTITY:7 TABLET(S);?
     Route: 048
  3. FLEXOTIDE [Concomitant]
  4. VENTOLIN [Concomitant]
     Active Substance: ALBUTEROL SULFATE
  5. VITAMIN D [Concomitant]
     Active Substance: VITAMIN D NOS

REACTIONS (10)
  - Suicide attempt [None]
  - Head injury [None]
  - Anxiety [None]
  - Insomnia [None]
  - Depressed mood [None]
  - Fear [None]
  - Paranoia [None]
  - Hallucination [None]
  - Intentional self-injury [None]
  - Decreased appetite [None]

NARRATIVE: CASE EVENT DATE: 20210312
